APPROVED DRUG PRODUCT: SULFAMETHOXAZOLE AND TRIMETHOPRIM
Active Ingredient: SULFAMETHOXAZOLE; TRIMETHOPRIM
Strength: 800MG;160MG
Dosage Form/Route: TABLET;ORAL
Application: A090828 | Product #001 | TE Code: AB
Applicant: GLENMARK PHARMACEUTICALS LTD
Approved: Dec 22, 2010 | RLD: No | RS: No | Type: RX